FAERS Safety Report 17510710 (Version 4)
Quarter: 2020Q2

REPORT INFORMATION
  Report Type: Report from Study
  Country: US (occurrence: US)
  Receive Date: 20200306
  Receipt Date: 20200619
  Transmission Date: 20200713
  Serious: Yes (Hospitalization)
  Sender: FDA-Public Use
  Company Number: US-NOVOPROD-714618

PATIENT
  Age: 72 Year
  Sex: Female
  Weight: 99 kg

DRUGS (2)
  1. SEMAGLUTIDE 7 MG [Suspect]
     Active Substance: SEMAGLUTIDE
     Indication: TYPE 2 DIABETES MELLITUS
     Dosage: 7.0,MG,ONCE PER DAY
     Route: 048
     Dates: start: 20191123, end: 20200217
  2. SEMAGLUTIDE 7 MG [Suspect]
     Active Substance: SEMAGLUTIDE
     Dosage: 3 MG, QD
     Dates: start: 20200326

REACTIONS (1)
  - Chronic kidney disease [Recovered/Resolved]

NARRATIVE: CASE EVENT DATE: 20200217
